FAERS Safety Report 10027896 (Version 1)
Quarter: 2014Q1

REPORT INFORMATION
  Report Type: Spontaneous
  Country: US (occurrence: None)
  Receive Date: 20140221
  Receipt Date: 20140221
  Transmission Date: 20141002
  Serious: Yes (Other)
  Sender: FDA-Public Use
  Company Number: ADR-2013-02124

PATIENT
  Age: 35 Year
  Sex: Male

DRUGS (1)
  1. BACLOFEN INTRATHECAL [Suspect]
     Indication: MUSCLE SPASTICITY
     Dates: start: 201307

REACTIONS (5)
  - Urinary tract infection [None]
  - Drug withdrawal syndrome [None]
  - Incision site erythema [None]
  - Posturing [None]
  - Muscle spasticity [None]
